FAERS Safety Report 7422009-6 (Version None)
Quarter: 2011Q2

REPORT INFORMATION
  Report Type: 
  Country: None (occurrence: None)
  Receive Date: 20110418
  Receipt Date: 20110412
  Transmission Date: 20111010
  Serious: Yes (Other)
  Sender: FDA-Public Use
  Company Number: US-SANOFI-AVENTIS-2011SA022522

PATIENT
  Age: 46 Year
  Sex: Male

DRUGS (5)
  1. GLEEVEC [Concomitant]
  2. NOVOLOG [Concomitant]
  3. VITAMINS NOS [Concomitant]
  4. SOLOSTAR [Suspect]
     Dates: start: 20110401
  5. LANTUS [Suspect]
     Dosage: DOSE:30 UNIT(S)
     Route: 058

REACTIONS (3)
  - GLYCOSYLATED HAEMOGLOBIN INCREASED [None]
  - CHRONIC MYELOID LEUKAEMIA [None]
  - HYPOGLYCAEMIA [None]
